FAERS Safety Report 5330269-0 (Version None)
Quarter: 2007Q2

REPORT INFORMATION
  Report Type: 
  Country: None (occurrence: None)
  Receive Date: 20070521
  Receipt Date: 20070515
  Transmission Date: 20071010
  Serious: Yes (Other)
  Sender: FDA-Public Use
  Company Number: US-BRISTOL-MYERS SQUIBB COMPANY-13784889

PATIENT
  Age: 37 Year
  Sex: Female

DRUGS (7)
  1. TEQUIN [Suspect]
     Indication: SINUSITIS
     Dates: start: 20050516, end: 20050526
  2. ORTHO-NOVUM 1/35 [Concomitant]
  3. CLARITIN [Concomitant]
  4. ZANAFLEX [Concomitant]
  5. POTASSIUM ACETATE [Concomitant]
  6. DARVOCET-N 100 [Concomitant]
  7. CYMBALTA [Concomitant]

REACTIONS (1)
  - HYPERGLYCAEMIA [None]
